FAERS Safety Report 13372245 (Version 1)
Quarter: 2017Q1

REPORT INFORMATION
  Report Type: Spontaneous
  Country: US (occurrence: US)
  Receive Date: 20170327
  Receipt Date: 20170327
  Transmission Date: 20170429
  Serious: Yes (Other)
  Sender: FDA-Public Use
  Company Number: US-ROCHE-1909926

PATIENT
  Age: 64 Year
  Sex: Female
  Weight: 97.61 kg

DRUGS (5)
  1. PREDNISONE. [Concomitant]
     Active Substance: PREDNISONE
     Dosage: 40 MG AND SHE WEANED DOWN BY 5 MG EVERYDAY TO 5 MG PER DAY.
     Route: 065
     Dates: start: 20170207
  2. PREDNISONE. [Concomitant]
     Active Substance: PREDNISONE
     Dosage: WHICH STARTED AT 35 MG PER DAY AND WEANED BY 5MG EVERY DAY UNTIL 5 MG
     Route: 065
     Dates: start: 20170220
  3. METHOTREXATE. [Concomitant]
     Active Substance: METHOTREXATE
     Indication: RHEUMATOID ARTHRITIS
     Dosage: NO
     Route: 048
     Dates: start: 2002, end: 20170203
  4. ACTEMRA [Suspect]
     Active Substance: TOCILIZUMAB
     Indication: RHEUMATOID ARTHRITIS
     Dosage: NO
     Route: 042
     Dates: start: 20161115, end: 20170207
  5. PREDNISONE. [Concomitant]
     Active Substance: PREDNISONE
     Dosage: N 10 MG PREDNISONE EVERY DAY AND THEN SHE WOULD TAPER TO 5MG ON 07/APR/2017, 08/APR/2017 AND 09/APR/
     Route: 065
     Dates: start: 20170301

REACTIONS (8)
  - Feeding disorder [Not Recovered/Not Resolved]
  - Dehydration [Recovered/Resolved]
  - Tongue ulceration [Not Recovered/Not Resolved]
  - Colitis ulcerative [Not Recovered/Not Resolved]
  - Diarrhoea haemorrhagic [Unknown]
  - Abdominal pain [Not Recovered/Not Resolved]
  - Mouth ulceration [Not Recovered/Not Resolved]
  - Diarrhoea [Not Recovered/Not Resolved]

NARRATIVE: CASE EVENT DATE: 20170110
